FAERS Safety Report 4906889-1 (Version None)
Quarter: 2006Q1

REPORT INFORMATION
  Report Type: 
  Country: None (occurrence: None)
  Receive Date: 20060207
  Receipt Date: 20060120
  Transmission Date: 20060701
  Serious: Yes (Other)
  Sender: FDA-Public Use
  Company Number: FR200601004222

PATIENT
  Age: 69 Year
  Sex: Female

DRUGS (15)
  1. FORTEO [Suspect]
     Indication: OSTEOPOROSIS
     Dosage: 20 UG, DAILY (1/D), SUBCUTANEOUS
     Route: 058
     Dates: start: 20050923
  2. FORTEO [Concomitant]
  3. PREDNISONE [Concomitant]
  4. METHOTREXATE [Concomitant]
  5. CALCIDOSE (CALCIUM CARBONATE) [Concomitant]
  6. POTASSIUM CHLORIDE [Concomitant]
  7. LEXOMIL (BROMAZEPAM) TABLET [Concomitant]
  8. ZOLOFT [Concomitant]
  9. MOTILIUM [Concomitant]
  10. MUCOMYST [Concomitant]
  11. SYMBICORT TURBUHALER ^ASTRAZENECA^ (BUDESONIDE, FORMOTEROL FUMARATE) [Concomitant]
  12. DUROGESIC /DEN/ (FENTANYL) [Concomitant]
  13. PRAXILENE (NAFTIDROFURYL OXALATE) [Concomitant]
  14. SPECIAFOLDINE (FOLIC ACID) [Concomitant]
  15. TANGANIL (ETHANOLAMINE ACETYLLEUCINATE) [Concomitant]

REACTIONS (4)
  - BLINDNESS UNILATERAL [None]
  - COAGULOPATHY [None]
  - ERYTHEMA [None]
  - THROMBOSIS [None]
